FAERS Safety Report 22650278 (Version 2)
Quarter: 2023Q4

REPORT INFORMATION
  Report Type: Spontaneous
  Country: US (occurrence: US)
  Receive Date: 20230628
  Receipt Date: 20231109
  Transmission Date: 20240110
  Serious: No
  Sender: FDA-Public Use
  Company Number: US-JNJFOC-20230235525

PATIENT
  Age: 21 Year
  Sex: Female

DRUGS (16)
  1. TYLENOL REGULAR STRENGTH [Suspect]
     Active Substance: ACETAMINOPHEN
     Indication: Migraine
     Dosage: REGULAR SIZE BOTTLE, OCCASIONALLY BIGGER BOTTLE, APPROX. 250 PILLS, RECEIVED IN FIRST, SECOND AND TH
     Route: 048
     Dates: start: 201306, end: 201403
  2. TYLENOL REGULAR STRENGTH [Suspect]
     Active Substance: ACETAMINOPHEN
     Dosage: REGULAR SIZE BOTTLE, OCCASIONALLY BIGGER BOTTLE, APPROX. 250 PILLS, RECEIVED IN FIRST, SECOND AND TH
     Route: 048
     Dates: start: 201306, end: 201403
  3. TYLENOL EXTRA STRENGTH [Suspect]
     Active Substance: ACETAMINOPHEN
     Indication: Product used for unknown indication
     Route: 065
     Dates: start: 201306, end: 201403
  4. TYLENOL [Suspect]
     Active Substance: ACETAMINOPHEN
     Indication: Infection
     Route: 048
     Dates: start: 201401, end: 201401
  5. ACETAMINOPHEN [Suspect]
     Active Substance: ACETAMINOPHEN
     Indication: Migraine
     Dosage: REGULAR SIZE BOTTLE, OCCASIONALLY BIGGER BOTTLE, APPROX. 250 PILLS, RECEIVED IN FIRST, SECOND AND TH
     Route: 048
     Dates: start: 201306, end: 201403
  6. VIBRAMYCIN [Concomitant]
     Active Substance: DOXYCYCLINE
     Indication: Product used for unknown indication
     Dosage: TAKE 1 CAPSULE (100 MG) BY MOUTH EVERY 12 HOURS
     Route: 048
     Dates: start: 20221010
  7. FERROUS SULFATE [Concomitant]
     Active Substance: FERROUS SULFATE
     Indication: Product used for unknown indication
     Dosage: TAKE 1 TABLET (325 MG) BY MOUTH 1 TIME PER DAY
     Route: 048
     Dates: start: 20220922
  8. VYVANSE [Concomitant]
     Active Substance: LISDEXAMFETAMINE DIMESYLATE
     Indication: Product used for unknown indication
     Route: 065
     Dates: start: 20220409
  9. PROZAC [Concomitant]
     Active Substance: FLUOXETINE HYDROCHLORIDE
     Indication: Product used for unknown indication
     Dosage: TAKE 1 CAPSULE BY MOUTH 1 TIME PER DAY
     Route: 048
     Dates: start: 20220323
  10. REMERON [Concomitant]
     Active Substance: MIRTAZAPINE
     Indication: Product used for unknown indication
     Dosage: TAKE 1 TABLET BY MOUTH 1 TIME PER DAY
     Route: 048
     Dates: start: 20220323
  11. TOPAMAX [Concomitant]
     Active Substance: TOPIRAMATE
     Indication: Product used for unknown indication
     Dosage: TAKE 1 TABLET BY MOUTH 1 TIME PER DAY
     Route: 048
     Dates: start: 20220126
  12. CLEOCIN T [Concomitant]
     Active Substance: CLINDAMYCIN PHOSPHATE
     Indication: Product used for unknown indication
     Route: 065
     Dates: start: 20220311
  13. CANNABIDIOL\HERBALS [Concomitant]
     Active Substance: CANNABIDIOL\HERBALS
     Indication: Product used for unknown indication
     Dosage: PRN PER PARAMETER
     Route: 065
  14. DIFFERIN [Concomitant]
     Active Substance: ADAPALENE
     Indication: Product used for unknown indication
     Dosage: APPLY TOPICALLY 2 TIMES A DAY
     Route: 061
  15. VITAMIN D3 [Concomitant]
     Active Substance: CHOLECALCIFEROL
     Indication: Product used for unknown indication
     Dosage: TAKE 50 MCG BY MOUTH 1 TIME PER DAY
     Route: 048
  16. CULTURELLE [Concomitant]
     Active Substance: LACTOBACILLUS RHAMNOSUS
     Indication: Product used for unknown indication
     Dosage: TAKE 1 CAPSULE BY MOUTH 1 TIME PER DAY
     Route: 048

REACTIONS (1)
  - Exposure during pregnancy [Unknown]

NARRATIVE: CASE EVENT DATE: 20130601
